FAERS Safety Report 21205813 (Version 1)
Quarter: 2022Q3

REPORT INFORMATION
  Report Type: Spontaneous
  Country: FR (occurrence: FR)
  Receive Date: 20220812
  Receipt Date: 20220812
  Transmission Date: 20221026
  Serious: Yes (Hospitalization)
  Sender: FDA-Public Use
  Company Number: None

PATIENT
  Age: 40 Year
  Sex: Female

DRUGS (4)
  1. PANTOPRAZOLE [Suspect]
     Active Substance: PANTOPRAZOLE
     Indication: Prophylaxis against gastrointestinal ulcer
     Dosage: 20MG, DURATION 5DAYS
     Route: 065
     Dates: start: 20220630, end: 20220705
  2. ALPRAZOLAM [Suspect]
     Active Substance: ALPRAZOLAM
     Indication: Anxiety
     Dosage: ON DEMAND, 0.25MG, FREQUENCY TIME 6HOURS, DURATION 4DAYS
     Route: 065
     Dates: start: 20220701, end: 20220705
  3. NEFOPAM HYDROCHLORIDE [Suspect]
     Active Substance: NEFOPAM HYDROCHLORIDE
     Indication: Pain
     Dosage: ON DEMAND, 20MG, FREQUENCY TIME 4HOURS, DURATION 4DAYS
     Route: 065
     Dates: start: 20220701, end: 20220705
  4. KEPPRA [Suspect]
     Active Substance: LEVETIRACETAM
     Indication: Epilepsy
     Dosage: STRENGTH 500MG, 1000MG, DURATION 4DAYS
     Route: 065
     Dates: start: 20220701, end: 20220705

REACTIONS (1)
  - Acute generalised exanthematous pustulosis [Recovered/Resolved]

NARRATIVE: CASE EVENT DATE: 20220704
